FAERS Safety Report 20382886 (Version 72)
Quarter: 2024Q4

REPORT INFORMATION
  Report Type: Spontaneous
  Country: AU (occurrence: AU)
  Receive Date: 20220127
  Receipt Date: 20241211
  Transmission Date: 20250114
  Serious: Yes (Other)
  Sender: PFIZER
  Company Number: AU-PFIZER INC-202101708645

PATIENT
  Age: 48 Year
  Sex: Male

DRUGS (50)
  1. ELELYSO [Suspect]
     Active Substance: TALIGLUCERASE ALFA
     Indication: Gaucher^s disease
     Dosage: 2400 UNITS
     Route: 042
     Dates: start: 20170209
  2. ELELYSO [Suspect]
     Active Substance: TALIGLUCERASE ALFA
     Dosage: 2400 UNITS
     Route: 042
     Dates: start: 20170222
  3. ELELYSO [Suspect]
     Active Substance: TALIGLUCERASE ALFA
     Dosage: 2400 UNITS
     Route: 042
     Dates: start: 20170308
  4. ELELYSO [Suspect]
     Active Substance: TALIGLUCERASE ALFA
     Dosage: 2400 UNITS
     Route: 042
     Dates: start: 20170322
  5. ELELYSO [Suspect]
     Active Substance: TALIGLUCERASE ALFA
     Dosage: 2400 UNITS
     Route: 042
     Dates: start: 20170405
  6. ELELYSO [Suspect]
     Active Substance: TALIGLUCERASE ALFA
     Dosage: 2400 UNITS
     Route: 042
     Dates: start: 20170419
  7. ELELYSO [Suspect]
     Active Substance: TALIGLUCERASE ALFA
     Dosage: 2400 UNITS
     Route: 042
     Dates: start: 20170503
  8. ELELYSO [Suspect]
     Active Substance: TALIGLUCERASE ALFA
     Dosage: 2400 UNITS
     Route: 042
     Dates: start: 20170609
  9. ELELYSO [Suspect]
     Active Substance: TALIGLUCERASE ALFA
     Dosage: 2400 UNITS
     Route: 042
     Dates: start: 20170614
  10. ELELYSO [Suspect]
     Active Substance: TALIGLUCERASE ALFA
     Dosage: 2400 UNITS
     Route: 042
     Dates: start: 20170630
  11. ELELYSO [Suspect]
     Active Substance: TALIGLUCERASE ALFA
     Dosage: 2400 UNITS
     Route: 042
     Dates: start: 20170720
  12. ELELYSO [Suspect]
     Active Substance: TALIGLUCERASE ALFA
     Dosage: 2400 UNITS
     Route: 042
     Dates: start: 20170803
  13. ELELYSO [Suspect]
     Active Substance: TALIGLUCERASE ALFA
     Dosage: 2400 UNITS
     Route: 042
     Dates: start: 20170823
  14. ELELYSO [Suspect]
     Active Substance: TALIGLUCERASE ALFA
     Dosage: 2400 UNITS
     Route: 042
     Dates: start: 20170906
  15. ELELYSO [Suspect]
     Active Substance: TALIGLUCERASE ALFA
     Dosage: 2400 UNITS
     Route: 042
     Dates: start: 20170920
  16. ELELYSO [Suspect]
     Active Substance: TALIGLUCERASE ALFA
     Dosage: 2400 UNITS
     Route: 042
     Dates: start: 20171004
  17. ELELYSO [Suspect]
     Active Substance: TALIGLUCERASE ALFA
     Dosage: 2400 UNITS
     Route: 042
     Dates: start: 20171018
  18. ELELYSO [Suspect]
     Active Substance: TALIGLUCERASE ALFA
     Dosage: 2400 UNITS
     Route: 042
     Dates: start: 20171101
  19. ELELYSO [Suspect]
     Active Substance: TALIGLUCERASE ALFA
     Dosage: 2400 UNITS
     Route: 042
     Dates: start: 20171115
  20. ELELYSO [Suspect]
     Active Substance: TALIGLUCERASE ALFA
     Dosage: 2400 UNITS
     Route: 042
     Dates: start: 20171129
  21. ELELYSO [Suspect]
     Active Substance: TALIGLUCERASE ALFA
     Dosage: 2400 UNITS
     Route: 042
     Dates: start: 20171214
  22. ELELYSO [Suspect]
     Active Substance: TALIGLUCERASE ALFA
     Dosage: 2400 UNITS
     Route: 042
     Dates: start: 20171221
  23. ELELYSO [Suspect]
     Active Substance: TALIGLUCERASE ALFA
     Dosage: 2400 UNITS
     Route: 042
     Dates: start: 20180110
  24. ELELYSO [Suspect]
     Active Substance: TALIGLUCERASE ALFA
     Dosage: 2400 UNITS
     Route: 042
     Dates: start: 20180201
  25. ELELYSO [Suspect]
     Active Substance: TALIGLUCERASE ALFA
     Dosage: 2400 UNITS
     Route: 042
     Dates: start: 20180208
  26. ELELYSO [Suspect]
     Active Substance: TALIGLUCERASE ALFA
     Dosage: 2400 UNITS
     Route: 042
     Dates: start: 20180221
  27. ELELYSO [Suspect]
     Active Substance: TALIGLUCERASE ALFA
     Dosage: 2400 UNITS
     Route: 042
     Dates: start: 20180307
  28. ELELYSO [Suspect]
     Active Substance: TALIGLUCERASE ALFA
     Dosage: 2400 UNITS
     Route: 042
     Dates: start: 20180321
  29. ELELYSO [Suspect]
     Active Substance: TALIGLUCERASE ALFA
     Dosage: 2400 UNITS
     Route: 042
     Dates: start: 20210714
  30. ELELYSO [Suspect]
     Active Substance: TALIGLUCERASE ALFA
     Dosage: 2400 UNITS
     Route: 042
     Dates: start: 20210728
  31. ELELYSO [Suspect]
     Active Substance: TALIGLUCERASE ALFA
     Dosage: 2400 UNITS
     Route: 042
     Dates: start: 20210811
  32. ELELYSO [Suspect]
     Active Substance: TALIGLUCERASE ALFA
     Dosage: 2400 UNITS
     Route: 042
     Dates: start: 20210825
  33. ELELYSO [Suspect]
     Active Substance: TALIGLUCERASE ALFA
     Dosage: 2400 UNITS
     Route: 042
     Dates: start: 20210908
  34. ELELYSO [Suspect]
     Active Substance: TALIGLUCERASE ALFA
     Dosage: 2400 UNITS
     Route: 042
     Dates: start: 20211008
  35. ELELYSO [Suspect]
     Active Substance: TALIGLUCERASE ALFA
     Dosage: 2400 UNITS
     Route: 042
     Dates: start: 20211021
  36. ELELYSO [Suspect]
     Active Substance: TALIGLUCERASE ALFA
     Dosage: 2400 UNITS
     Route: 042
     Dates: start: 20211021
  37. ELELYSO [Suspect]
     Active Substance: TALIGLUCERASE ALFA
     Dosage: 2400 UNITS
     Route: 042
     Dates: start: 20211103
  38. ELELYSO [Suspect]
     Active Substance: TALIGLUCERASE ALFA
     Dosage: 2400 UNITS
     Route: 042
     Dates: start: 20211117
  39. ELELYSO [Suspect]
     Active Substance: TALIGLUCERASE ALFA
     Dosage: 2400 UNITS
     Route: 042
     Dates: start: 20211202
  40. ELELYSO [Suspect]
     Active Substance: TALIGLUCERASE ALFA
     Dosage: 2400 UNITS
     Route: 042
     Dates: start: 20211216
  41. ELELYSO [Suspect]
     Active Substance: TALIGLUCERASE ALFA
     Dosage: 2400 UNITS
     Route: 042
     Dates: start: 20211230
  42. ELELYSO [Suspect]
     Active Substance: TALIGLUCERASE ALFA
     Dosage: 2400 UNITS
     Route: 042
     Dates: start: 20220113
  43. ELELYSO [Suspect]
     Active Substance: TALIGLUCERASE ALFA
     Dosage: 2400 UNITS
     Route: 042
     Dates: start: 20220127
  44. ELELYSO [Suspect]
     Active Substance: TALIGLUCERASE ALFA
     Dosage: 2400 UNITS
     Route: 042
     Dates: start: 20220210
  45. ELELYSO [Suspect]
     Active Substance: TALIGLUCERASE ALFA
     Dosage: 2400 UNITS
     Route: 042
     Dates: start: 20220224
  46. ELELYSO [Suspect]
     Active Substance: TALIGLUCERASE ALFA
     Dosage: 2400 UNITS
     Route: 042
     Dates: start: 20220310
  47. ELELYSO [Suspect]
     Active Substance: TALIGLUCERASE ALFA
     Dosage: 2400 UNITS
     Route: 042
     Dates: start: 20220324
  48. ELELYSO [Suspect]
     Active Substance: TALIGLUCERASE ALFA
     Dosage: 2400 UNITS
     Route: 042
     Dates: start: 20220421
  49. ELELYSO [Suspect]
     Active Substance: TALIGLUCERASE ALFA
     Dosage: 2400 UNITS
     Route: 042
     Dates: start: 20220505
  50. ELELYSO [Suspect]
     Active Substance: TALIGLUCERASE ALFA
     Dosage: 2400 UNITS
     Route: 042
     Dates: start: 20220825

REACTIONS (7)
  - Hypertension [Recovered/Resolved]
  - Respiratory rate decreased [Unknown]
  - Heart rate decreased [Unknown]
  - Body temperature decreased [Unknown]
  - Blood pressure systolic increased [Recovering/Resolving]
  - Erythema [Unknown]
  - Pruritus [Unknown]

NARRATIVE: CASE EVENT DATE: 20221103
